FAERS Safety Report 13159034 (Version 1)
Quarter: 2017Q1

REPORT INFORMATION
  Report Type: Spontaneous
  Country: DE (occurrence: DE)
  Receive Date: 20170127
  Receipt Date: 20170127
  Transmission Date: 20170428
  Serious: Yes (Hospitalization)
  Sender: FDA-Public Use
  Company Number: PHHY2016DE160958

PATIENT
  Sex: Male

DRUGS (1)
  1. GILENYA [Suspect]
     Active Substance: FINGOLIMOD HYDROCHLORIDE
     Indication: MULTIPLE SCLEROSIS
     Dosage: 0.5 MG, QD
     Route: 048
     Dates: start: 20150806, end: 20161102

REACTIONS (11)
  - Sarcomatosis [Recovered/Resolved]
  - Hypertonic bladder [Recovered/Resolved]
  - Nocturia [Recovered/Resolved]
  - Varicocele [Recovered/Resolved]
  - Clear cell renal cell carcinoma [Recovered/Resolved]
  - Renal necrosis [Recovered/Resolved]
  - Micturition disorder [Recovered/Resolved]
  - Pyrexia [Recovered/Resolved]
  - Micturition urgency [Recovered/Resolved]
  - Kidney duplex [Recovered/Resolved]
  - Chronic kidney disease [Recovered/Resolved]

NARRATIVE: CASE EVENT DATE: 20161115
